FAERS Safety Report 21211463 (Version 1)
Quarter: 2022Q3

REPORT INFORMATION
  Report Type: Report from Study
  Country: DE (occurrence: DE)
  Receive Date: 20220815
  Receipt Date: 20220815
  Transmission Date: 20221027
  Serious: Yes (Other)
  Sender: FDA-Public Use
  Company Number: DE-UCBSA-2022045491

PATIENT
  Sex: Female

DRUGS (7)
  1. CERTOLIZUMAB PEGOL [Suspect]
     Active Substance: CERTOLIZUMAB PEGOL
     Indication: Rheumatoid arthritis
     Dosage: 200 MILLIGRAM
     Dates: start: 201207, end: 201210
  2. METHOTREXATE [Concomitant]
     Active Substance: METHOTREXATE
     Indication: Product used for unknown indication
     Dosage: 10,0
  3. METHOTREXATE [Concomitant]
     Active Substance: METHOTREXATE
     Dosage: 10,0
  4. METHOTREXATE [Concomitant]
     Active Substance: METHOTREXATE
     Dosage: 10,0
  5. METHOTREXATE [Concomitant]
     Active Substance: METHOTREXATE
     Dosage: 10,0
  6. METHOTREXATE [Concomitant]
     Active Substance: METHOTREXATE
     Dosage: 10,0
  7. HUMIRA [Concomitant]
     Active Substance: ADALIMUMAB
     Indication: Product used for unknown indication
     Dosage: 40 MILLIGRAM
     Dates: start: 201211

REACTIONS (1)
  - Skin cancer [Recovered/Resolved]

NARRATIVE: CASE EVENT DATE: 20211001
